FAERS Safety Report 9142364 (Version 3)
Quarter: 2013Q2

REPORT INFORMATION
  Report Type: Report from Study
  Country: KR (occurrence: KR)
  Receive Date: 20130306
  Receipt Date: 20130415
  Transmission Date: 20140414
  Serious: Yes (Hospitalization)
  Sender: FDA-Public Use
  Company Number: KR-AMGEN-KORCT2013014166

PATIENT
  Age: 72 Year
  Sex: Male
  Weight: 65 kg

DRUGS (13)
  1. PANITUMUMAB [Suspect]
     Indication: COLORECTAL CANCER METASTATIC
     Dosage: PER PROTOCOL
     Dates: start: 20130103, end: 20130228
  2. NORVASC [Concomitant]
     Dosage: 5 MG, UNK
     Route: 048
     Dates: start: 20020615
  3. EBASTINE [Concomitant]
     Dosage: 1 UNK, UNK
     Route: 048
     Dates: start: 20130114, end: 20130116
  4. LEVOCETIRIZINE [Concomitant]
     Dosage: 5 MG, UNK
     Route: 048
     Dates: start: 20130114, end: 20130116
  5. PIMECROLIMUS [Concomitant]
     Dosage: 10 UNK, UNK
     Route: 061
     Dates: start: 20130114
  6. MINOCYCLINE [Concomitant]
     Dosage: 50 MG, UNK
     Route: 048
     Dates: start: 20130117, end: 20130302
  7. HYDROXYZINE [Concomitant]
     Dosage: 25 MG, UNK
     Route: 048
     Dates: start: 20130117
  8. MAGNES [Concomitant]
     Dosage: 1 UNK, UNK
     Route: 048
     Dates: start: 20130214
  9. CITOPCIN                           /00697202/ [Concomitant]
     Dosage: 500 MG, UNK
     Route: 048
     Dates: start: 20130219, end: 20130226
  10. HARNAL D [Concomitant]
     Dosage: 0.2 MG, UNK
     Route: 048
     Dates: start: 20130219, end: 20130328
  11. AIRTAL [Concomitant]
     Dosage: 100 MG, UNK
     Route: 048
     Dates: start: 20130219, end: 20130228
  12. NSAID^S [Concomitant]
     Dosage: UNK
  13. CONTRAST MEDIA [Concomitant]
     Dosage: UNK

REACTIONS (1)
  - Hyperkalaemia [Recovered/Resolved]
